FAERS Safety Report 23095636 (Version 1)
Quarter: 2023Q4

REPORT INFORMATION
  Report Type: Spontaneous
  Country: US (occurrence: None)
  Receive Date: 20231019
  Receipt Date: 20231019
  Transmission Date: 20240109
  Serious: Yes (Hospitalization)
  Sender: FDA-Public Use
  Company Number: None

PATIENT
  Age: 60 Year
  Sex: Male
  Weight: 110 kg

DRUGS (1)
  1. EMPAGLIFLOZIN [Suspect]
     Active Substance: EMPAGLIFLOZIN
     Dosage: FREQUENCY : DAILY;?
     Route: 048
     Dates: start: 20211115, end: 20221219

REACTIONS (10)
  - Diabetic ketoacidosis [None]
  - Flank pain [None]
  - Acute kidney injury [None]
  - Hypertension [None]
  - Hypercalcaemia [None]
  - Seizure [None]
  - Diabetes mellitus inadequate control [None]
  - Coronary artery disease [None]
  - Hyperlipidaemia [None]
  - Bipolar disorder [None]

NARRATIVE: CASE EVENT DATE: 20221121
